FAERS Safety Report 8532277-5 (Version None)
Quarter: 2012Q3

REPORT INFORMATION
  Report Type: 
  Country: None (occurrence: None)
  Receive Date: 20120724
  Receipt Date: 20120718
  Transmission Date: 20120928
  Serious: Yes (Other)
  Sender: FDA-Public Use
  Company Number: PHHY2012TW061741

PATIENT
  Age: 85 Year
  Sex: Male

DRUGS (2)
  1. QUETIAPINE [Interacting]
     Indication: AGITATION
     Dosage: 50 MG, DAILY
  2. VALPROIC ACID [Suspect]
     Indication: AGITATION
     Dosage: 200 MG PER DAY

REACTIONS (2)
  - DRUG INTERACTION [None]
  - NEUTROPENIA [None]
